FAERS Safety Report 4398006-4 (Version None)
Quarter: 2004Q3

REPORT INFORMATION
  Report Type: 
  Country: None (occurrence: None)
  Receive Date: 20040713
  Receipt Date: 20040630
  Transmission Date: 20050211
  Serious: Yes (Hospitalization)
  Sender: FDA-Public Use
  Company Number: DEU-2004-0000905

PATIENT
  Age: 10 Year
  Sex: Male

DRUGS (6)
  1. MORPHINE SULFATE INJ [Suspect]
     Indication: CANCER PAIN
     Dosage: 10 + 150 MG, PRN, INTRAMUSCULAR
     Route: 030
     Dates: start: 19930911, end: 19930912
  2. MORPHINE SULFATE INJ [Suspect]
     Indication: CANCER PAIN
     Dosage: 10 + 150 MG, PRN, INTRAMUSCULAR
     Route: 030
     Dates: start: 19930611
  3. MORPHINE SULFATE [Suspect]
     Indication: CANCER PAIN
     Dosage: 100 MG, TID, ORAL
     Route: 048
     Dates: start: 19930101, end: 19930101
  4. MORPHINE SULFATE [Suspect]
     Indication: CANCER PAIN
     Dosage: 100 MG, TID, ORAL
     Route: 048
     Dates: start: 19930101, end: 19930912
  5. ACETAMINOPHEN [Concomitant]
  6. PREDNISOLONE [Concomitant]

REACTIONS (3)
  - ALLODYNIA [None]
  - DRUG WITHDRAWAL SYNDROME [None]
  - HYPERAESTHESIA [None]
